FAERS Safety Report 7529056-4 (Version None)
Quarter: 2011Q2

REPORT INFORMATION
  Report Type: 
  Country: None (occurrence: None)
  Receive Date: 20110607
  Receipt Date: 20110531
  Transmission Date: 20111010
  Serious: Yes (Other)
  Sender: FDA-Public Use
  Company Number: US-SANOFI-AVENTIS-2011SA034300

PATIENT
  Sex: Female

DRUGS (3)
  1. OPTICLICK [Suspect]
     Indication: TYPE 2 DIABETES MELLITUS
     Dates: start: 20090101
  2. LANTUS [Suspect]
     Indication: TYPE 2 DIABETES MELLITUS
     Dosage: 30 UNITS IN AM /  60 UNITS IN PM
     Route: 058
     Dates: start: 20010101
  3. HUMALOG [Concomitant]

REACTIONS (2)
  - NASOPHARYNGITIS [None]
  - CARDIAC OPERATION [None]
